FAERS Safety Report 15007411 (Version 2)
Quarter: 2020Q3

REPORT INFORMATION
  Report Type: Report from Study
  Country: IT (occurrence: IT)
  Receive Date: 20180613
  Receipt Date: 20180615
  Transmission Date: 20201105
  Serious: Yes (Disabling)
  Sender: FDA-Public Use
  Company Number: IT-JNJFOC-20180615131

PATIENT
  Age: 51 Year
  Sex: Female
  Weight: 68 kg

DRUGS (4)
  1. TRABECTEDIN [Suspect]
     Active Substance: TRABECTEDIN
     Indication: OVARIAN CANCER
     Dosage: CYCLE 1 AND 2, 2.00 UNSPECIFIED UNITS (ADMINISTERED DOSE), 1.10 UNSPECIFIED UNITS (INTENDED DOSE)
     Route: 042
     Dates: start: 20160314, end: 20160407
  2. PLD [Suspect]
     Active Substance: DOXORUBICIN HYDROCHLORIDE
     Indication: OVARIAN CANCER
     Dosage: CYCLE 1 AND 2, 54.00 UNSPECIFIED UNITS (ADMINISTERED DOSE), 30.00 UNSPECIFIED UNITS (INTENDED DOSE)
     Route: 042
     Dates: start: 20160314, end: 20160407
  3. TRABECTEDIN [Suspect]
     Active Substance: TRABECTEDIN
     Route: 042
  4. PLD [Suspect]
     Active Substance: DOXORUBICIN HYDROCHLORIDE
     Route: 042

REACTIONS (2)
  - Nausea [Recovered/Resolved]
  - Leukopenia [Recovered/Resolved]

NARRATIVE: CASE EVENT DATE: 20160408
